FAERS Safety Report 6618360-X (Version None)
Quarter: 2010Q1

REPORT INFORMATION
  Report Type: 
  Country: None (occurrence: None)
  Receive Date: 20100308
  Receipt Date: 20100301
  Transmission Date: 20100710
  Serious: Yes (Hospitalization)
  Sender: FDA-Public Use
  Company Number: A0848435A

PATIENT
  Age: 47 Year
  Sex: Female
  Weight: 120.9 kg

DRUGS (1)
  1. AVANDIA [Suspect]
     Dosage: 4MG SEE DOSAGE TEXT
     Route: 048
     Dates: start: 20040817, end: 20050809

REACTIONS (5)
  - CARDIAC FAILURE CONGESTIVE [None]
  - CARDIOMEGALY [None]
  - DYSPNOEA [None]
  - OEDEMA [None]
  - SLEEP APNOEA SYNDROME [None]
